FAERS Safety Report 19873068 (Version 1)
Quarter: 2021Q3

REPORT INFORMATION
  Report Type: Spontaneous
  Country: US (occurrence: US)
  Receive Date: 20210922
  Receipt Date: 20210922
  Transmission Date: 20211014
  Serious: No
  Sender: FDA-Public Use
  Company Number: None

PATIENT
  Age: 16 Year
  Sex: Female
  Weight: 61.24 kg

DRUGS (2)
  1. ETHOSUXIMIDE. [Suspect]
     Active Substance: ETHOSUXIMIDE
     Indication: PETIT MAL EPILEPSY
     Dosage: ?          QUANTITY:4 PILLS;?
     Route: 048
     Dates: start: 20190701, end: 20210826
  2. MULTIVITAMIN [Concomitant]
     Active Substance: VITAMINS

REACTIONS (7)
  - Headache [None]
  - Abdominal pain upper [None]
  - Product substitution issue [None]
  - Drug level below therapeutic [None]
  - Dizziness [None]
  - Hiccups [None]
  - Eructation [None]

NARRATIVE: CASE EVENT DATE: 20190701
